FAERS Safety Report 12507175 (Version 2)
Quarter: 2016Q3

REPORT INFORMATION
  Report Type: Spontaneous
  Country: PT (occurrence: PT)
  Receive Date: 20160629
  Receipt Date: 20160711
  Transmission Date: 20161109
  Serious: Yes (Hospitalization)
  Sender: FDA-Public Use
  Company Number: PT-AUROBINDO-AUR-APL-2016-08458

PATIENT
  Sex: Male
  Weight: 68.83 kg

DRUGS (4)
  1. VALSARTAN+HYDROCHLOROTHIAZIDE FILM-COATED TABLET [Suspect]
     Active Substance: HYDROCHLOROTHIAZIDE\VALSARTAN
     Indication: HYPERTENSION
     Dosage: 1 DF, ONCE A DAY
     Route: 048
  2. VARFINE [Concomitant]
     Active Substance: WARFARIN SODIUM
     Indication: HYPOCOAGULABLE STATE
     Dosage: POSOLOGIA: SEGUNDO ESQUEMA.
     Route: 048
  3. FLUIMUCIL [Concomitant]
     Active Substance: ACETYLCYSTEINE
     Indication: PRODUCTIVE COUGH
     Route: 048
  4. COMBODART [Concomitant]
     Active Substance: DUTASTERIDE\TAMSULOSIN
     Indication: PROSTATIC DISORDER
     Dosage: 1 DF, ONCE A DAY
     Route: 048

REACTIONS (5)
  - Dry throat [Recovering/Resolving]
  - Palpitations [Recovering/Resolving]
  - Blood pressure abnormal [Recovering/Resolving]
  - Dyspnoea [Recovering/Resolving]
  - Tachycardia [Recovering/Resolving]
